FAERS Safety Report 4828687-X (Version None)
Quarter: 2005Q4

REPORT INFORMATION
  Report Type: 
  Country: None (occurrence: None)
  Receive Date: 20051115
  Receipt Date: 20051026
  Transmission Date: 20060501
  Serious: Yes (Hospitalization)
  Sender: FDA-Public Use
  Company Number: PHHO2005NZ16786

PATIENT
  Age: 35 Year
  Sex: Female

DRUGS (5)
  1. CLOZARIL [Suspect]
     Indication: SCHIZOPHRENIA
     Dosage: 375MG DAILY
     Route: 048
     Dates: start: 20050704, end: 20051023
  2. LITHIUM [Concomitant]
     Dosage: 1 G, BID
  3. PAROXETINE HCL [Concomitant]
     Dosage: 20 MG, QD
  4. OMEPRAZOLE [Concomitant]
     Dosage: 20 MG, QD
  5. ZOPICLONE [Concomitant]

REACTIONS (4)
  - DRUG LEVEL INCREASED [None]
  - GASTROINTESTINAL NECROSIS [None]
  - INTESTINAL ISCHAEMIA [None]
  - MEGACOLON [None]
